FAERS Safety Report 7064755-2 (Version None)
Quarter: 2010Q4

REPORT INFORMATION
  Report Type: 
  Country: None (occurrence: None)
  Receive Date: 20101027
  Receipt Date: 19840201
  Transmission Date: 20110411
  Serious: Yes (Death)
  Sender: FDA-Public Use
  Company Number: DE-ROCHE-840311446001

PATIENT
  Age: 67 Year
  Sex: Female

DRUGS (13)
  1. VALIUM [Suspect]
     Indication: SEDATION
     Route: 048
  2. LIMBITROL TABLETS [Suspect]
     Indication: DEPRESSION
     Route: 065
  3. DROMORAN [Suspect]
     Indication: SEDATION
     Route: 065
  4. PANTOPON [Suspect]
     Indication: SEDATION
     Route: 065
  5. TOFRANIL [Suspect]
     Indication: DEPRESSION
     Route: 065
  6. ANAFRANIL [Suspect]
     Indication: DEPRESSION
     Route: 065
  7. HALDOL [Suspect]
     Route: 065
  8. TRAZODONE HCL [Concomitant]
     Indication: DEPRESSION
     Route: 065
  9. LOFEPRAMINE HYDROCHLORIDE [Concomitant]
     Indication: DEPRESSION
     Route: 065
  10. IMAP [Concomitant]
     Route: 065
  11. MEPERIDINE HCL [Concomitant]
     Indication: SEDATION
     Route: 065
  12. TRADON [Concomitant]
     Route: 065
  13. FORTALIDON [Concomitant]
     Route: 065

REACTIONS (2)
  - DEATH [None]
  - DELIRIUM [None]
